FAERS Safety Report 9216993 (Version 1)
Quarter: 2013Q2

REPORT INFORMATION
  Report Type: Spontaneous
  Country: US (occurrence: US)
  Receive Date: 20130408
  Receipt Date: 20130408
  Transmission Date: 20140414
  Serious: No
  Sender: FDA-Public Use
  Company Number: US-BAYER-2013-043862

PATIENT
  Age: 87 Year
  Sex: Male
  Weight: 73 kg

DRUGS (7)
  1. ALEVE CAPLET [Suspect]
     Dosage: 2 DF, ONCE
     Route: 048
     Dates: start: 20130326, end: 20130326
  2. PROTONIX [Concomitant]
  3. COUMADIN [Concomitant]
  4. MULTIVITAMIN [Concomitant]
  5. ASPIRIN [Concomitant]
     Indication: ISCHAEMIC HEART DISEASE PROPHYLAXIS
  6. CELEXA [Concomitant]
  7. TEGRETOL [Concomitant]

REACTIONS (1)
  - Pollakiuria [Not Recovered/Not Resolved]
